FAERS Safety Report 9184179 (Version 1)
Quarter: 2012Q4

REPORT INFORMATION
  Report Type: 
  Country: US (occurrence: US)
  Receive Date: 20121031
  Receipt Date: 20121031
  Transmission Date: 20130627
  Serious: No
  Sender: FDA-Public Use
  Company Number: US-009507513-1210USA006674

PATIENT
  Sex: Male

DRUGS (5)
  1. ASMANEX TWISTHALER [Suspect]
     Indication: ASTHMA
     Dosage: 1 UNK, UNK, inhalation
     Route: 055
     Dates: start: 201207
  2. MONTELUKAST SODIUM [Concomitant]
  3. FLUTICASONE [Concomitant]
  4. AZELASTINE HYDROCHLORIDE [Concomitant]
  5. CETIRIZINE HYDROCHLORIDE [Concomitant]

REACTIONS (4)
  - Asthma [Not Recovered/Not Resolved]
  - Wheezing [Not Recovered/Not Resolved]
  - Product quality issue [Unknown]
  - Incorrect dose administered [Unknown]
